FAERS Safety Report 8491788-1 (Version None)
Quarter: 2012Q3

REPORT INFORMATION
  Report Type: 
  Country: None (occurrence: None)
  Receive Date: 20120706
  Receipt Date: 20120626
  Transmission Date: 20120928
  Serious: Yes (Other)
  Sender: FDA-Public Use
  Company Number: FR-FRI-1000026421

PATIENT
  Sex: Female
  Weight: 86 kg

DRUGS (1)
  1. ESCITALOPRAM [Suspect]
     Indication: DEPRESSION
     Dosage: 5 MG
     Route: 048

REACTIONS (2)
  - WITHDRAWAL SYNDROME [None]
  - DRUG DEPENDENCE [None]
